FAERS Safety Report 6239467-5 (Version None)
Quarter: 2009Q2

REPORT INFORMATION
  Report Type: 
  Country: None (occurrence: None)
  Receive Date: 20090618
  Receipt Date: 20090618
  Transmission Date: 20091009
  Serious: Yes (Other)
  Sender: FDA-Public Use
  Company Number: None

PATIENT
  Age: 29 Year
  Sex: Female
  Weight: 67.1324 kg

DRUGS (1)
  1. ZICAM SINUS RELIEF WITH MENTHOL N/A MATRIXX INITIATIVES [Suspect]
     Indication: SINUS CONGESTION
     Dosage: 1 SPRAY EACH NOSTRAL 2XQD NASAL
     Route: 045
     Dates: start: 20090301, end: 20090304

REACTIONS (2)
  - HYPOGEUSIA [None]
  - HYPOSMIA [None]
